FAERS Safety Report 13651976 (Version 1)
Quarter: 2017Q2

REPORT INFORMATION
  Report Type: Spontaneous
  Country: US (occurrence: US)
  Receive Date: 20170614
  Receipt Date: 20170614
  Transmission Date: 20170830
  Serious: Yes (Disabling, Other)
  Sender: FDA-Public Use
  Company Number: None

PATIENT
  Age: 47 Year
  Sex: Male
  Weight: 82.35 kg

DRUGS (12)
  1. CLONAZEPAM. [Concomitant]
     Active Substance: CLONAZEPAM
  2. CALCIUM [Concomitant]
     Active Substance: CALCIUM
  3. VITAMIN C [Concomitant]
     Active Substance: ASCORBIC ACID
  4. CELEBREX [Concomitant]
     Active Substance: CELECOXIB
  5. MAGNESIUM [Concomitant]
     Active Substance: MAGNESIUM
  6. CIPROFLOXIN [Suspect]
     Active Substance: CIPROFLOXACIN
     Indication: INFECTION
     Dosage: ?          QUANTITY:2 TABLET(S);?
     Route: 048
     Dates: start: 20170414, end: 20170429
  7. MELATONIN [Concomitant]
     Active Substance: MELATONIN
  8. VITAMIN D3 [Concomitant]
     Active Substance: CHOLECALCIFEROL
  9. HYDROCODONE WITH 325 ACETAMINOPHEN [Concomitant]
  10. VITAMIN B COMPLEX [Concomitant]
     Active Substance: CYANOCOBALAMIN\DEXPANTHENOL\NIACINAMIDE\PYRIDOXINE HYDROCHLORIDE\RIBOFLAVIN 5^-PHOSPHATE SODIUM\THIAMINE HYDROCHLORIDE\VITAMIN B COMPLEX
  11. TIZANIDINE. [Concomitant]
     Active Substance: TIZANIDINE
  12. FISH OIL [Concomitant]
     Active Substance: FISH OIL

REACTIONS (24)
  - Urticaria [None]
  - Blood glucose decreased [None]
  - Asthenia [None]
  - Panic attack [None]
  - Impaired quality of life [None]
  - Dyspnoea [None]
  - Depressed level of consciousness [None]
  - Flushing [None]
  - Paranoia [None]
  - Cough [None]
  - Speech disorder [None]
  - Weight decreased [None]
  - Vision blurred [None]
  - Diplopia [None]
  - Clumsiness [None]
  - Hyperventilation [None]
  - Anxiety [None]
  - Pruritus [None]
  - Paraesthesia [None]
  - Decreased appetite [None]
  - Joint stiffness [None]
  - Head discomfort [None]
  - Confusional state [None]
  - Memory impairment [None]

NARRATIVE: CASE EVENT DATE: 20170414
